FAERS Safety Report 15351752 (Version 1)
Quarter: 2018Q3

REPORT INFORMATION
  Report Type: Spontaneous
  Country: US (occurrence: US)
  Receive Date: 20180905
  Receipt Date: 20180905
  Transmission Date: 20181010
  Serious: No
  Sender: FDA-Public Use
  Company Number: US-SA-2018SA247511

PATIENT
  Age: 52 Year
  Sex: Female

DRUGS (1)
  1. DUPIXENT [Suspect]
     Active Substance: DUPILUMAB
     Indication: DERMATITIS
     Dosage: 300 MG ON DAY 1
     Route: 058
     Dates: start: 20180725, end: 20180725

REACTIONS (2)
  - Incorrect dose administered [Unknown]
  - Dry skin [Unknown]

NARRATIVE: CASE EVENT DATE: 20180725
